FAERS Safety Report 6920086-X (Version None)
Quarter: 2010Q3

REPORT INFORMATION
  Report Type: 
  Country: None (occurrence: None)
  Receive Date: 20100811
  Receipt Date: 20100805
  Transmission Date: 20110219
  Serious: Yes (Other)
  Sender: FDA-Public Use
  Company Number: US-ABBOTT-10P-163-0661615-00

PATIENT
  Sex: Female
  Weight: 67.192 kg

DRUGS (21)
  1. HUMIRA [Suspect]
     Indication: CROHN'S DISEASE
     Route: 058
     Dates: start: 20100310
  2. PRENATAL [Concomitant]
     Indication: PRODUCT USED FOR UNKNOWN INDICATION
     Route: 048
     Dates: start: 20100310
  3. FISH OIL [Concomitant]
     Indication: SUPPLEMENTATION THERAPY
     Route: 048
     Dates: start: 20100401
  4. FERROUS SULFATE [Concomitant]
     Indication: PRODUCT USED FOR UNKNOWN INDICATION
     Route: 048
     Dates: start: 20100310
  5. AMBIEN [Concomitant]
     Indication: INSOMNIA
     Dosage: 5 TOTAL
     Route: 048
     Dates: start: 20100313, end: 20100403
  6. ALBUTEROL [Concomitant]
     Indication: ASTHMA
     Route: 055
     Dates: start: 20100310, end: 20100403
  7. ALBUTEROL [Concomitant]
     Dates: start: 20100702, end: 20100702
  8. ADVAIR DISKUS 100/50 [Concomitant]
     Indication: ASTHMA
     Route: 048
     Dates: start: 20100310, end: 20100403
  9. TYLENOL-500 [Concomitant]
     Indication: HEADACHE
     Dosage: 2 TOTAL
     Route: 048
     Dates: start: 20100403, end: 20100410
  10. TYLENOL (CAPLET) [Concomitant]
     Indication: INFLAMMATION
     Route: 048
     Dates: start: 20100310, end: 20100403
  11. ANTIBIOTICS [Concomitant]
     Indication: UPPER RESPIRATORY TRACT INFECTION
     Route: 048
     Dates: start: 20100602, end: 20100611
  12. VENTOLIN [Concomitant]
     Indication: ASTHMA
     Route: 055
     Dates: start: 20100602, end: 20100616
  13. VENTOLIN [Concomitant]
     Indication: UPPER RESPIRATORY TRACT INFECTION
     Route: 055
     Dates: start: 20100617
  14. RHINOCORT [Concomitant]
     Indication: UPPER RESPIRATORY TRACT INFECTION
     Dates: start: 20100602
  15. ZYRTEC [Concomitant]
     Indication: HYPERSENSITIVITY
     Route: 048
     Dates: start: 20100602
  16. SINGULAIR [Concomitant]
     Indication: ASTHMA
     Dosage: 2.5 PER WEEK
     Route: 048
     Dates: start: 20100706
  17. SINGULAIR [Concomitant]
     Indication: UPPER RESPIRATORY TRACT INFECTION
  18. ZANTAC [Concomitant]
     Indication: DYSPEPSIA
     Route: 048
     Dates: start: 20100706
  19. PROPOFOL [Concomitant]
     Indication: ANAESTHESIA
     Route: 042
     Dates: start: 20100702, end: 20100702
  20. PROPOFOL [Concomitant]
     Indication: FISTULA REPAIR
  21. ACETAMINOPHEN [Concomitant]
     Indication: BACK PAIN
     Route: 048
     Dates: start: 20100421

REACTIONS (1)
  - FISTULA [None]
